FAERS Safety Report 4873698-1 (Version None)
Quarter: 2006Q1

REPORT INFORMATION
  Report Type: 
  Country: None (occurrence: None)
  Receive Date: 20060105
  Receipt Date: 20060105
  Transmission Date: 20060701
  Serious: No
  Sender: FDA-Public Use
  Company Number: None

PATIENT
  Age: 3 Month

DRUGS (2)
  1. SODIUM BICARBONATE [Suspect]
     Dosage: INJECTABLE
  2. SODIUM CHLORIDE [Suspect]
     Dosage: INJECTABLE

REACTIONS (4)
  - BLOOD SODIUM INCREASED [None]
  - DRUG DISPENSING ERROR [None]
  - MEDICATION ERROR [None]
  - WRONG TECHNIQUE IN DRUG USAGE PROCESS [None]
